FAERS Safety Report 4596284-X (Version None)
Quarter: 2005Q1

REPORT INFORMATION
  Report Type: 
  Country: None (occurrence: None)
  Receive Date: 20050302
  Receipt Date: 20050203
  Transmission Date: 20050727
  Serious: Yes (Death, Hospitalization, Congenital Anomaly)
  Sender: FDA-Public Use
  Company Number: AU-MERCK-0502AUS00041B1

PATIENT

DRUGS (1)
  1. ZOCOR [Suspect]
     Indication: METABOLIC DISORDER
     Dates: start: 19920330, end: 19920713

REACTIONS (5)
  - CHROMOSOME ABNORMALITY [None]
  - DEATH [None]
  - DRUG EXPOSURE DURING PREGNANCY [None]
  - PREMATURE BABY [None]
  - PREMATURE LABOUR [None]
